FAERS Safety Report 12311397 (Version 11)
Quarter: 2022Q4

REPORT INFORMATION
  Report Type: Report from Study
  Country: DE (occurrence: DE)
  Receive Date: 20160427
  Receipt Date: 20221107
  Transmission Date: 20230113
  Serious: Yes (Hospitalization, Other)
  Sender: FDA-Public Use
  Company Number: DE-002147023-PHHY2016DE007641

PATIENT

DRUGS (3)
  1. RUXOLITINIB [Suspect]
     Active Substance: RUXOLITINIB
     Indication: Primary myelofibrosis
     Dosage: 40 MG, BID
     Route: 048
     Dates: start: 20150204, end: 20150826
  2. RUXOLITINIB [Suspect]
     Active Substance: RUXOLITINIB
     Dosage: 40 MG, QD
     Route: 048
     Dates: start: 20160127
  3. MAGNESIUM ASPARTATE\POTASSIUM ASPARTATE [Concomitant]
     Active Substance: MAGNESIUM ASPARTATE\POTASSIUM ASPARTATE
     Indication: Product used for unknown indication
     Dosage: UNK
     Route: 065
     Dates: start: 20160516

REACTIONS (12)
  - Abscess [Recovered/Resolved]
  - C-reactive protein increased [Unknown]
  - Muscle spasms [Not Recovered/Not Resolved]
  - Erythrophagocytosis [Not Recovered/Not Resolved]
  - Furuncle [Unknown]
  - Haemophagocytic lymphohistiocytosis [Recovered/Resolved]
  - Haemosiderosis [Unknown]
  - Iron overload [Not Recovered/Not Resolved]
  - Inappropriate schedule of product administration [Unknown]
  - Mucosal inflammation [Not Recovered/Not Resolved]
  - Erythema [Unknown]
  - Weight decreased [Not Recovered/Not Resolved]

NARRATIVE: CASE EVENT DATE: 20150717
